FAERS Safety Report 10533126 (Version 1)
Quarter: 2014Q4

REPORT INFORMATION
  Report Type: Spontaneous
  Country: US (occurrence: US)
  Receive Date: 20141022
  Receipt Date: 20141022
  Transmission Date: 20150529
  Serious: No
  Sender: FDA-Public Use
  Company Number: US-BIOGENIDEC-2014BI108524

PATIENT
  Sex: Female

DRUGS (4)
  1. KEPPRA [Concomitant]
     Active Substance: LEVETIRACETAM
     Indication: SEIZURE
  2. LAMICTAL [Concomitant]
     Active Substance: LAMOTRIGINE
     Indication: SEIZURE
  3. TECFIDERA [Suspect]
     Active Substance: DIMETHYL FUMARATE
     Indication: RELAPSING-REMITTING MULTIPLE SCLEROSIS
     Route: 048
     Dates: start: 2013, end: 2014
  4. NEURONTIN [Concomitant]
     Active Substance: GABAPENTIN
     Indication: SEIZURE

REACTIONS (18)
  - Headache [Not Recovered/Not Resolved]
  - Muscle tightness [Not Recovered/Not Resolved]
  - Irritability [Unknown]
  - Hemiparesis [Unknown]
  - Memory impairment [Not Recovered/Not Resolved]
  - Burning sensation [Recovered/Resolved]
  - Multiple sclerosis [Not Recovered/Not Resolved]
  - Fatigue [Not Recovered/Not Resolved]
  - Personality change [Unknown]
  - Frustration [Unknown]
  - Muscle spasms [Unknown]
  - Hepatic enzyme increased [Not Recovered/Not Resolved]
  - Gait disturbance [Unknown]
  - Skin discolouration [Unknown]
  - Generalised erythema [Recovered/Resolved]
  - Dyspnoea [Not Recovered/Not Resolved]
  - Visual impairment [Unknown]
  - Pain in extremity [Unknown]

NARRATIVE: CASE EVENT DATE: 2013
